FAERS Safety Report 8543432-2 (Version None)
Quarter: 2012Q3

REPORT INFORMATION
  Report Type: 
  Country: None (occurrence: None)
  Receive Date: 20120727
  Receipt Date: 20120723
  Transmission Date: 20120928
  Serious: Yes (Death)
  Sender: FDA-Public Use
  Company Number: PHHY2012JP064472

PATIENT
  Age: 78 Year
  Sex: Female

DRUGS (1)
  1. IMATINIB MESYLATE [Suspect]
     Indication: GASTROINTESTINAL STROMAL TUMOUR
     Dosage: 400 MG, ONCE A DAY

REACTIONS (2)
  - NEOPLASM MALIGNANT [None]
  - OESOPHAGEAL SQUAMOUS CELL CARCINOMA [None]
